FAERS Safety Report 7097066-X (Version None)
Quarter: 2010Q4

REPORT INFORMATION
  Report Type: 
  Country: None (occurrence: None)
  Receive Date: 20101111
  Receipt Date: 20101101
  Transmission Date: 20110411
  Serious: Yes (Disabling, Other)
  Sender: FDA-Public Use
  Company Number: DK-BAYER-201044655GPV

PATIENT
  Sex: Female

DRUGS (26)
  1. PARAMAGNETIC CONTRAST MEDIA [Suspect]
     Indication: SCAN WITH CONTRAST
     Dates: start: 20020101
  2. OMNISCAN [Suspect]
     Indication: NUCLEAR MAGNETIC RESONANCE IMAGING
  3. PARAMAGNETIC CONTRAST MEDIA [Suspect]
     Dates: start: 20020101
  4. RAMACE [Concomitant]
     Dosage: TOTAL DAILY DOSE: 5 MG
     Dates: start: 20000229
  5. SANDIMMUNE [Concomitant]
     Dosage: TOTAL DAILY DOSE: 4000 MG
     Dates: start: 20000229
  6. PREDNISOLONE [Concomitant]
     Dosage: TOTAL DAILY DOSE: 5 MG
     Dates: start: 20000229
  7. ASPIRIN [Concomitant]
     Dosage: TOTAL DAILY DOSE: 300 MG
     Dates: start: 20000229
  8. ASPIRIN [Concomitant]
     Dosage: TOTAL DAILY DOSE: 75 MG
     Dates: start: 20001030
  9. PERSANTIN [Concomitant]
     Dosage: TOTAL DAILY DOSE: 300 MG
     Dates: start: 20000229
  10. DIURAL [Concomitant]
     Dosage: 120 + 80 MG
     Dates: start: 20000229
  11. DIURAL [Concomitant]
     Dosage: TOTAL DAILY DOSE: 1000 MG
     Dates: start: 20001030
  12. ACTRAPID [Concomitant]
     Dosage: 6 + 16 + 16 IU
     Dates: start: 20000229
  13. INSULATARD [Concomitant]
     Dates: start: 20000229
  14. TRAMADOL HCL [Concomitant]
     Dosage: TOTAL DAILY DOSE: 400 MG
     Dates: start: 20000229
  15. PONDOCILLIN [Concomitant]
     Dosage: TOTAL DAILY DOSE: 1500 MG
     Dates: start: 20001030
  16. PREDNISOLONE [Concomitant]
     Dosage: TOTAL DAILY DOSE: 5 MG
     Dates: start: 20001030
  17. CALCIUM CARBONATE [Concomitant]
     Dates: start: 20001030
  18. SODIUM BICARBONATE [Concomitant]
     Dosage: TOTAL DAILY DOSE: 2 DF
     Dates: start: 20001030
  19. METOPROLOL SUCCINATE [Concomitant]
     Dosage: TOTAL DAILY DOSE: 50 MG
     Dates: start: 20001030
  20. CYCLOSPORINE [Concomitant]
     Dosage: TOTAL DAILY DOSE: 200 MG
     Dates: start: 20001030
  21. ADALAT [Concomitant]
     Dosage: TOTAL DAILY DOSE: 30 MG
     Dates: start: 20001030
  22. ETALPHA [Concomitant]
     Dosage: TOTAL DAILY DOSE: 5 ?G
     Dates: start: 20001030
  23. CIPRAMIL [Concomitant]
     Dosage: TOTAL DAILY DOSE: 20 MG
     Dates: start: 20001030
  24. FERRO DURETTER [Concomitant]
     Dosage: TOTAL DAILY DOSE: 200 MG
     Dates: start: 20001030
  25. EPREX [Concomitant]
     Dosage: TOTAL DAILY DOSE: 5000 U
     Route: 058
     Dates: start: 20001030
  26. SODIUM POLYSTYRENE SULFONATE [Concomitant]
     Dosage: NON-DIALYSIS DAY

REACTIONS (3)
  - GAIT DISTURBANCE [None]
  - MUSCULOSKELETAL STIFFNESS [None]
  - NEPHROGENIC SYSTEMIC FIBROSIS [None]
